FAERS Safety Report 22228484 (Version 3)
Quarter: 2023Q2

REPORT INFORMATION
  Report Type: Spontaneous
  Country: JP (occurrence: JP)
  Receive Date: 20230419
  Receipt Date: 20230512
  Transmission Date: 20230722
  Serious: Yes (Other)
  Sender: FDA-Public Use
  Company Number: JP-teijin-202300961_FE_P_1

PATIENT
  Age: 70 Year
  Sex: Male

DRUGS (3)
  1. FEBUXOSTAT [Suspect]
     Active Substance: FEBUXOSTAT
     Indication: Hyperuricaemia
     Dosage: UNK
     Route: 048
  2. METOANA [Concomitant]
     Indication: Steroid diabetes
     Dosage: UNK
     Route: 048
  3. Covid-19 vaccine [Concomitant]
     Dosage: UNK
     Route: 065

REACTIONS (2)
  - Dermatitis exfoliative generalised [Recovering/Resolving]
  - Oesophageal carcinoma [Unknown]
